FAERS Safety Report 15806391 (Version 1)
Quarter: 2018Q4

REPORT INFORMATION
  Report Type: Spontaneous
  Country: US (occurrence: US)
  Receive Date: 20181213
  Receipt Date: 20181213
  Transmission Date: 20190205
  Serious: Yes (Hospitalization)
  Sender: FDA-Public Use
  Company Number: None

PATIENT
  Age: 15 Year
  Sex: Female
  Weight: 42.9 kg

DRUGS (6)
  1. PREDNISONE. [Suspect]
     Active Substance: PREDNISONE
     Dates: end: 20130927
  2. CYTARABINE. [Suspect]
     Active Substance: CYTARABINE
     Dates: end: 20130903
  3. DAUNORUBICIN [Suspect]
     Active Substance: DAUNORUBICIN
     Dates: end: 20130924
  4. METHOTREXATE. [Suspect]
     Active Substance: METHOTREXATE
     Dates: end: 20130910
  5. PEG-L-ASPARAGINASE [Suspect]
     Active Substance: PEGASPARGASE
     Dates: end: 20130906
  6. VINCRISTINE [Suspect]
     Active Substance: VINCRISTINE
     Dates: end: 20130924

REACTIONS (13)
  - Pneumonia klebsiella [None]
  - Packed red blood cell transfusion [None]
  - Cardiac dysfunction [None]
  - Transfusion [None]
  - Pyrexia [None]
  - Tachycardia [None]
  - Hypotension [None]
  - Lung infiltration [None]
  - Pleural effusion [None]
  - Platelet transfusion [None]
  - Disseminated intravascular coagulation [None]
  - Chills [None]
  - Respiratory distress [None]

NARRATIVE: CASE EVENT DATE: 20130928
